FAERS Safety Report 5591090-1 (Version None)
Quarter: 2008Q1

REPORT INFORMATION
  Report Type: 
  Country: None (occurrence: None)
  Receive Date: 20080115
  Receipt Date: 20080109
  Transmission Date: 20080703
  Serious: Yes (Life-Threatening, Hospitalization, Disabling)
  Sender: FDA-Public Use
  Company Number: PHRM2008FR00510

PATIENT
  Age: 38 Year
  Sex: Female

DRUGS (1)
  1. VOLTAREN [Suspect]
     Indication: SCIATICA
     Route: 048

REACTIONS (11)
  - ABSCESS DRAINAGE [None]
  - CONFUSIONAL STATE [None]
  - HYDROCEPHALUS [None]
  - HYPOTENSION [None]
  - INTERVERTEBRAL DISCITIS [None]
  - MENINGITIS BACTERIAL [None]
  - MENINGITIS STAPHYLOCOCCAL [None]
  - STAPHYLOCOCCAL SEPSIS [None]
  - VENTRICULO-PERITONEAL SHUNT [None]
  - VERTEBRAL ABSCESS [None]
  - VOMITING [None]
